FAERS Safety Report 24859626 (Version 2)
Quarter: 2025Q1

REPORT INFORMATION
  Report Type: Report from Study
  Country: CA (occurrence: CA)
  Receive Date: 20250119
  Receipt Date: 20250220
  Transmission Date: 20250409
  Serious: Yes (Death, Other)
  Sender: HLS THERAPEUTICS
  Company Number: CA-HLS-202500103

PATIENT
  Age: 70 Year
  Sex: Male
  Weight: 85 kg

DRUGS (18)
  1. CLOZARIL [Suspect]
     Active Substance: CLOZAPINE
     Indication: Schizophrenia
     Route: 048
     Dates: start: 20111227
  2. CLOZARIL [Suspect]
     Active Substance: CLOZAPINE
     Indication: Schizophrenia
     Route: 048
     Dates: start: 20200712
  3. Lax-A Day [Concomitant]
     Indication: Product used for unknown indication
     Route: 048
     Dates: start: 20220602
  4. ISOPTO ATROPINE [Concomitant]
     Active Substance: ATROPINE SULFATE
     Indication: Salivary hypersecretion
     Route: 060
     Dates: start: 20241101
  5. ISOPTO ATROPINE [Concomitant]
     Active Substance: ATROPINE SULFATE
     Indication: Salivary hypersecretion
     Route: 060
     Dates: start: 20241101
  6. SYNTHROID [Concomitant]
     Active Substance: LEVOTHYROXINE SODIUM
     Indication: Product used for unknown indication
     Route: 048
     Dates: start: 20230907
  7. COGENTIN [Concomitant]
     Active Substance: BENZTROPINE MESYLATE
     Indication: Product used for unknown indication
     Route: 048
     Dates: start: 20211122
  8. ATIVAN [Concomitant]
     Active Substance: LORAZEPAM
     Indication: Aggression
     Route: 030
     Dates: start: 20220602
  9. ATIVAN [Concomitant]
     Active Substance: LORAZEPAM
     Indication: Aggression
     Route: 048
     Dates: start: 20220602
  10. RIVOTRIL [Concomitant]
     Active Substance: CLONAZEPAM
     Indication: Product used for unknown indication
     Route: 048
     Dates: start: 20231005
  11. DEPAKENE [Concomitant]
     Active Substance: VALPROIC ACID
     Indication: Product used for unknown indication
     Route: 048
     Dates: start: 20240521
  12. VENTOLIN [Concomitant]
     Active Substance: ALBUTEROL SULFATE
     Indication: Product used for unknown indication
     Route: 048
  13. AMOXICILLIN\CLAVULANATE POTASSIUM [Concomitant]
     Active Substance: AMOXICILLIN\CLAVULANATE POTASSIUM
     Indication: Product used for unknown indication
     Route: 048
     Dates: start: 20250106
  14. BENADRYL [Concomitant]
     Active Substance: DIPHENHYDRAMINE HYDROCHLORIDE
     Indication: Oculogyric crisis
     Route: 030
     Dates: start: 20170912
  15. ZUCLOPENTHIXOL [Concomitant]
     Active Substance: ZUCLOPENTHIXOL
     Indication: Product used for unknown indication
     Route: 030
     Dates: start: 20240325
  16. HALDOL [Concomitant]
     Active Substance: HALOPERIDOL
     Indication: Aggression
     Route: 030
     Dates: start: 20220602
  17. HALDOL [Concomitant]
     Active Substance: HALOPERIDOL
     Indication: Aggression
     Route: 048
     Dates: start: 20220602
  18. SENOKOT [Concomitant]
     Active Substance: SENNOSIDES
     Indication: Product used for unknown indication
     Route: 065
     Dates: start: 20120318

REACTIONS (3)
  - Pneumonia aspiration [Fatal]
  - Death [Fatal]
  - Dysphagia [Fatal]

NARRATIVE: CASE EVENT DATE: 20250111
